FAERS Safety Report 25366694 (Version 1)
Quarter: 2025Q2

REPORT INFORMATION
  Report Type: Spontaneous
  Country: FR (occurrence: FR)
  Receive Date: 20250528
  Receipt Date: 20250528
  Transmission Date: 20250716
  Serious: Yes (Other)
  Sender: GRIFOLS
  Company Number: FR-IGSA-BIG0035068

PATIENT
  Age: 10 Year
  Sex: Female

DRUGS (1)
  1. XEMBIFY [Suspect]
     Active Substance: HUMAN IMMUNOGLOBULIN G
     Indication: Product used for unknown indication
     Route: 065

REACTIONS (2)
  - Infusion site necrosis [Unknown]
  - Infusion site oedema [Unknown]

NARRATIVE: CASE EVENT DATE: 20250304
